FAERS Safety Report 25172400 (Version 1)
Quarter: 2025Q2

REPORT INFORMATION
  Report Type: Spontaneous
  Country: US (occurrence: US)
  Receive Date: 20250408
  Receipt Date: 20250408
  Transmission Date: 20250716
  Serious: No
  Sender: APOTEX
  Company Number: US-APOTEX-2025AP003897

PATIENT
  Age: 38 Year
  Sex: Female

DRUGS (4)
  1. CYCLOSPORINE [Suspect]
     Active Substance: CYCLOSPORINE
     Indication: Chronic graft versus host disease in eye
     Route: 047
  2. RUXOLITINIB [Suspect]
     Active Substance: RUXOLITINIB
     Indication: Chronic graft versus host disease in eye
     Route: 065
  3. LOTEPREDNOL [Suspect]
     Active Substance: LOTEPREDNOL
     Indication: Chronic graft versus host disease in eye
     Route: 047
  4. FAMCICLOVIR [Concomitant]
     Active Substance: FAMCICLOVIR
     Indication: Chronic graft versus host disease in eye
     Route: 065

REACTIONS (1)
  - Molluscum contagiosum [Recovered/Resolved]
